FAERS Safety Report 8161905-1 (Version None)
Quarter: 2012Q1

REPORT INFORMATION
  Report Type: 
  Country: None (occurrence: None)
  Receive Date: 20120224
  Receipt Date: 20111114
  Transmission Date: 20120608
  Serious: No
  Sender: FDA-Public Use
  Company Number: US-BRISTOL-MYERS SQUIBB COMPANY-16229866

PATIENT
  Age: 57 Year
  Sex: Male
  Weight: 95 kg

DRUGS (3)
  1. ABILIFY [Suspect]
     Dates: start: 20091001
  2. LEXAPRO [Concomitant]
  3. METFORMIN HCL [Suspect]

REACTIONS (1)
  - ASTHENIA [None]
